FAERS Safety Report 6060139-4 (Version None)
Quarter: 2009Q1

REPORT INFORMATION
  Report Type: 
  Country: None (occurrence: None)
  Receive Date: 20090128
  Receipt Date: 20090116
  Transmission Date: 20090719
  Serious: Yes (Hospitalization)
  Sender: FDA-Public Use
  Company Number: 005465

PATIENT
  Age: 23 Year
  Sex: Female

DRUGS (5)
  1. BUSULFEX [Suspect]
     Indication: STEM CELL TRANSPLANT
     Dosage: 0.8 MG/KG, QID INTRAVENOUS
     Route: 042
     Dates: start: 20061121, end: 20061124
  2. CYTARABINE [Concomitant]
  3. FLUDARABINE PHOSPHATE [Concomitant]
  4. FILGRASTIM (FILGRASTIM) [Concomitant]
  5. SANDIMMUNE [Concomitant]

REACTIONS (4)
  - ACUTE GRAFT VERSUS HOST DISEASE [None]
  - ANOREXIA [None]
  - APLASIA PURE RED CELL [None]
  - STOMATITIS [None]
